FAERS Safety Report 5934614-4 (Version None)
Quarter: 2008Q4

REPORT INFORMATION
  Report Type: 
  Country: None (occurrence: None)
  Receive Date: 20081029
  Receipt Date: 20081017
  Transmission Date: 20090506
  Serious: Yes (Hospitalization)
  Sender: FDA-Public Use
  Company Number: US-AMGEN-US314240

PATIENT
  Sex: Female

DRUGS (12)
  1. ETANERCEPT [Suspect]
     Indication: RHEUMATOID ARTHRITIS
     Route: 058
     Dates: start: 19970925
  2. ARICEPT [Concomitant]
     Route: 065
  3. CARBIDOPA AND LEVODOPA [Concomitant]
     Route: 065
  4. ENTACAPONE [Concomitant]
     Route: 065
  5. NORVASC [Concomitant]
     Route: 065
  6. SEROQUEL [Concomitant]
     Route: 065
  7. IPRATROPIUM BROMIDE [Concomitant]
     Route: 065
  8. ALBUTEROL [Concomitant]
     Route: 055
  9. FOSAMAX [Concomitant]
     Route: 065
  10. DARVOCET-N 100 [Concomitant]
     Route: 065
  11. STOOL SOFTENER [Concomitant]
     Route: 065
  12. WARFARIN SODIUM [Concomitant]
     Route: 065
     Dates: start: 20080801

REACTIONS (5)
  - ACUTE RESPIRATORY DISTRESS SYNDROME [None]
  - COAGULOPATHY [None]
  - ESCHERICHIA INFECTION [None]
  - RENAL FAILURE ACUTE [None]
  - UROSEPSIS [None]
